FAERS Safety Report 25526443 (Version 1)
Quarter: 2025Q3

REPORT INFORMATION
  Report Type: Report from Study
  Country: US (occurrence: US)
  Receive Date: 20250707
  Receipt Date: 20250707
  Transmission Date: 20251020
  Serious: No
  Sender: MALLINCKRODT
  Company Number: US-MALLINCKRODT-MNK202503637

PATIENT
  Age: 52 Year
  Sex: Female

DRUGS (2)
  1. CORTICOTROPIN [Suspect]
     Active Substance: CORTICOTROPIN
     Indication: Rheumatoid arthritis
     Route: 058
     Dates: start: 20250529
  2. XELJANZ [Concomitant]
     Active Substance: TOFACITINIB CITRATE

REACTIONS (12)
  - Brain fog [Unknown]
  - Tremor [Unknown]
  - Skin irritation [Unknown]
  - Pruritus [Unknown]
  - Memory impairment [Unknown]
  - Fatigue [Recovered/Resolved]
  - Insomnia [Unknown]
  - Headache [Unknown]
  - Acne [Unknown]
  - Asthenia [Unknown]
  - Injection site pruritus [Unknown]
  - Fungal infection [Unknown]

NARRATIVE: CASE EVENT DATE: 20250101
